FAERS Safety Report 14028373 (Version 4)
Quarter: 2018Q1

REPORT INFORMATION
  Report Type: Spontaneous
  Country: TW (occurrence: TW)
  Receive Date: 20170930
  Receipt Date: 20180319
  Transmission Date: 20180508
  Serious: Yes (Death, Hospitalization, Other)
  Sender: FDA-Public Use
  Company Number: TW-AMGEN-TWNSP2017148250

PATIENT
  Age: 66 Year
  Sex: Female

DRUGS (1)
  1. ENBREL [Suspect]
     Active Substance: ETANERCEPT
     Indication: RHEUMATOID ARTHRITIS
     Dosage: 25 MG, 2X/WEEK
     Route: 058
     Dates: start: 20130215, end: 20170725

REACTIONS (21)
  - Sleep disorder due to a general medical condition [Not Recovered/Not Resolved]
  - Acute respiratory distress syndrome [Unknown]
  - Altered state of consciousness [Unknown]
  - Asthenia [Not Recovered/Not Resolved]
  - Hypokalaemia [Not Recovered/Not Resolved]
  - Pulmonary mass [Unknown]
  - Urinary tract infection [Unknown]
  - Pneumonia aspiration [Fatal]
  - Hemiparesis [Unknown]
  - Adrenal insufficiency [Not Recovered/Not Resolved]
  - Pyrexia [Not Recovered/Not Resolved]
  - Sepsis [Unknown]
  - Duodenal ulcer [Unknown]
  - Cerebral infarction [Unknown]
  - Hypernatraemia [Not Recovered/Not Resolved]
  - Respiratory failure [Unknown]
  - Cystitis [Unknown]
  - Pneumonia [Not Recovered/Not Resolved]
  - Thrombocytopenia [Unknown]
  - Chronic kidney disease [Unknown]
  - Condition aggravated [Unknown]

NARRATIVE: CASE EVENT DATE: 201708
